FAERS Safety Report 9020378 (Version 1)
Quarter: 2013Q1

REPORT INFORMATION
  Report Type: Spontaneous
  Country: None (occurrence: US)
  Receive Date: 20130119
  Receipt Date: 20130119
  Transmission Date: 20140127
  Serious: No
  Sender: FDA-Public Use
  Company Number: US-ALLERGAN-1209082US

PATIENT
  Sex: Female

DRUGS (7)
  1. BOTOX? [Suspect]
     Indication: MIGRAINE
     Dosage: UNK
     Route: 030
  2. BOTOX? [Suspect]
     Dosage: UNK
     Dates: start: 201201, end: 201201
  3. WELLBUTRIN /00700501/ [Concomitant]
     Indication: PRODUCT USED FOR UNKNOWN INDICATION
  4. KLONOPIN [Concomitant]
     Indication: PRODUCT USED FOR UNKNOWN INDICATION
     Dosage: 0.5 MG, BID
     Route: 048
  5. SINGULAIR                          /01362601/ [Concomitant]
     Indication: PRODUCT USED FOR UNKNOWN INDICATION
  6. TOPAMAX [Concomitant]
     Indication: MIGRAINE
  7. BENADRYL [Concomitant]
     Indication: HYPERSENSITIVITY

REACTIONS (7)
  - Local swelling [Recovered/Resolved]
  - Arthralgia [Recovering/Resolving]
  - Urinary tract infection [Recovered/Resolved]
  - Swelling face [Recovered/Resolved]
  - Neck pain [Recovering/Resolving]
  - Myalgia [Recovering/Resolving]
  - Muscular weakness [Recovering/Resolving]
